FAERS Safety Report 18241982 (Version 1)
Quarter: 2020Q3

REPORT INFORMATION
  Report Type: Spontaneous
  Country: US (occurrence: US)
  Receive Date: 20200908
  Receipt Date: 20200908
  Transmission Date: 20201103
  Serious: No
  Sender: FDA-Public Use
  Company Number: None

PATIENT
  Sex: Female

DRUGS (1)
  1. PRO SANITIZE ADVANCED HAND SANITIZER [Suspect]
     Active Substance: ALCOHOL
     Indication: COVID-19 PROPHYLAXIS
     Dates: start: 20200904, end: 20200904

REACTIONS (6)
  - Flushing [None]
  - Dyspnoea [None]
  - Chest discomfort [None]
  - Product odour abnormal [None]
  - Malaise [None]
  - Rash [None]

NARRATIVE: CASE EVENT DATE: 20200904
